FAERS Safety Report 17667580 (Version 1)
Quarter: 2020Q2

REPORT INFORMATION
  Report Type: Spontaneous
  Country: CH (occurrence: CH)
  Receive Date: 20200414
  Receipt Date: 20200414
  Transmission Date: 20200713
  Serious: Yes (Hospitalization)
  Sender: FDA-Public Use
  Company Number: CH-ALLERGAN-2015304US

PATIENT
  Sex: Female
  Weight: 72 kg

DRUGS (11)
  1. ESCITALOPRAM OXALATE - BP [Suspect]
     Active Substance: ESCITALOPRAM OXALATE
     Indication: PRODUCT USED FOR UNKNOWN INDICATION
     Dosage: 10 MG
     Route: 048
  2. SEQUASE [Concomitant]
     Active Substance: QUETIAPINE FUMARATE
     Dosage: 175 MG
     Route: 048
  3. ELTROXIN LF [Concomitant]
     Route: 048
  4. DEPAKINE [Concomitant]
     Active Substance: VALPROATE SODIUM
     Route: 048
  5. ELTROXIN LF [Concomitant]
     Route: 048
  6. DAFLON [Concomitant]
     Route: 048
  7. SINTROM [Suspect]
     Active Substance: ACENOCOUMAROL
     Indication: PRODUCT USED FOR UNKNOWN INDICATION
     Dosage: DOSAGGIO SECONDO SCHEMA
     Route: 048
     Dates: start: 200008, end: 20200121
  8. JANUMET [Concomitant]
     Active Substance: METFORMIN HYDROCHLORIDE\SITAGLIPTIN PHOSPHATE
     Dosage: 1 DF, BID
     Route: 048
  9. PANTOZOL [Concomitant]
     Active Substance: PANTOPRAZOLE SODIUM
     Route: 048
  10. BILOL [Concomitant]
     Active Substance: BISOPROLOL
     Route: 048
  11. FUROSPIR [Concomitant]
     Active Substance: FUROSEMIDE\SPIRONOLACTONE
     Dosage: 1 DF
     Route: 048

REACTIONS (3)
  - Haematemesis [Recovered/Resolved]
  - Gastrointestinal haemorrhage [Recovering/Resolving]
  - Anaemia [Recovering/Resolving]

NARRATIVE: CASE EVENT DATE: 20200121
